FAERS Safety Report 5022979-X (Version None)
Quarter: 2006Q2

REPORT INFORMATION
  Report Type: 
  Country: None (occurrence: None)
  Receive Date: 20060426
  Receipt Date: 20060318
  Transmission Date: 20061013
  Serious: Yes (Other)
  Sender: FDA-Public Use
  Company Number: 2006040368

PATIENT
  Sex: Male

DRUGS (3)
  1. LYRICA [Suspect]
     Indication: PAIN IN EXTREMITY
     Dates: start: 20060101
  2. FLOMAX [Concomitant]
  3. MOTRIN [Concomitant]

REACTIONS (5)
  - DIZZINESS [None]
  - FEELING DRUNK [None]
  - PARANOIA [None]
  - SOMNOLENCE [None]
  - VISUAL DISTURBANCE [None]
